FAERS Safety Report 4380333-8 (Version None)
Quarter: 2004Q2

REPORT INFORMATION
  Report Type: 
  Country: None (occurrence: None)
  Receive Date: 20040618
  Receipt Date: 20040224
  Transmission Date: 20050107
  Serious: Yes (Hospitalization)
  Sender: FDA-Public Use
  Company Number: US-AMGEN-US067738

PATIENT
  Sex: Male

DRUGS (2)
  1. ETANERCEPT [Suspect]
     Indication: JUVENILE ARTHRITIS
     Route: 058
     Dates: start: 20030609, end: 20040218
  2. METHOTREXATE [Concomitant]
     Dates: end: 20040224

REACTIONS (2)
  - INTESTINAL INFARCTION [None]
  - INTESTINAL ISCHAEMIA [None]
